FAERS Safety Report 11641400 (Version 1)
Quarter: 2015Q4

REPORT INFORMATION
  Report Type: Spontaneous
  Country: US (occurrence: US)
  Receive Date: 20151019
  Receipt Date: 20151019
  Transmission Date: 20160304
  Serious: No
  Sender: FDA-Public Use
  Company Number: US-HORIZON-VIM-0121-2015

PATIENT
  Sex: Female

DRUGS (6)
  1. LOSARTAN. [Concomitant]
     Active Substance: LOSARTAN
  2. VITAMIN D [Concomitant]
     Active Substance: CHOLECALCIFEROL
  3. TOPROL XL [Concomitant]
     Active Substance: METOPROLOL SUCCINATE
  4. PROGESTERONE. [Concomitant]
     Active Substance: PROGESTERONE
     Dosage: DAILY
  5. ESTRADIOL. [Concomitant]
     Active Substance: ESTRADIOL
     Dosage: DAILY
  6. VIMOVO [Suspect]
     Active Substance: ESOMEPRAZOLE MAGNESIUM\NAPROXEN
     Indication: MUSCULOSKELETAL PAIN
     Dosage: 1 DF TWICE DAILY
     Dates: start: 20150902

REACTIONS (2)
  - Off label use [Unknown]
  - Drug dose omission [Unknown]

NARRATIVE: CASE EVENT DATE: 20151013
